FAERS Safety Report 9458929 (Version 1)
Quarter: 2013Q3

REPORT INFORMATION
  Report Type: Spontaneous
  Country: US (occurrence: US)
  Receive Date: 20130814
  Receipt Date: 20130814
  Transmission Date: 20140515
  Serious: Yes (Other)
  Sender: FDA-Public Use
  Company Number: US-PFIZER INC-2013234781

PATIENT
  Sex: Female

DRUGS (1)
  1. LYRICA [Suspect]
     Dosage: UNK
     Dates: start: 201308, end: 201308

REACTIONS (5)
  - Hypoacusis [Unknown]
  - Convulsion [Unknown]
  - Dyskinesia [Unknown]
  - Crying [Unknown]
  - Somnolence [Unknown]
